FAERS Safety Report 17622252 (Version 2)
Quarter: 2020Q2

REPORT INFORMATION
  Report Type: Spontaneous
  Country: US (occurrence: US)
  Receive Date: 20200403
  Receipt Date: 20200506
  Transmission Date: 20200713
  Serious: No
  Sender: FDA-Public Use
  Company Number: US-ASTRAZENECA-2020SE35705

PATIENT
  Age: 23197 Day
  Sex: Female
  Weight: 96.2 kg

DRUGS (20)
  1. AMLODIPINE BENAZEPRIL [Concomitant]
     Active Substance: AMLODIPINE BESYLATE\BENAZEPRIL HYDROCHLORIDE
     Indication: BLOOD PRESSURE ABNORMAL
     Dosage: 10-40 MG, DAILY
     Route: 048
  2. CLONAZEPAM. [Concomitant]
     Active Substance: CLONAZEPAM
     Indication: INITIAL INSOMNIA
     Route: 048
  3. ASMANEX [Concomitant]
     Active Substance: MOMETASONE FUROATE
     Dosage: UNKNOWN DOSE, TWO TIMES A DAY
     Route: 055
  4. AZELASTINE   HCL [Concomitant]
     Active Substance: AZELASTINE HYDROCHLORIDE
     Indication: SINUS CONGESTION
     Dosage: TWO TIMES A DAY
     Route: 045
  5. ALBUTEROL. [Concomitant]
     Active Substance: ALBUTEROL
     Dosage: AS REQUIRED
     Route: 055
  6. BYDUREON BCISE [Suspect]
     Active Substance: EXENATIDE
     Indication: TYPE 2 DIABETES MELLITUS
     Route: 058
     Dates: start: 2019
  7. JARDIANCE [Concomitant]
     Active Substance: EMPAGLIFLOZIN
     Route: 048
  8. CLONAZEPAM. [Concomitant]
     Active Substance: CLONAZEPAM
     Indication: SLEEP APNOEA SYNDROME
     Route: 048
  9. ZYRTEC GENERIC [Concomitant]
     Active Substance: CETIRIZINE HYDROCHLORIDE
     Indication: HYPERSENSITIVITY
     Route: 048
  10. AZELASTINE   HCL [Concomitant]
     Active Substance: AZELASTINE HYDROCHLORIDE
     Indication: TOOTHACHE
     Dosage: TWO TIMES A DAY
     Route: 045
  11. AZELASTINE   HCL [Concomitant]
     Active Substance: AZELASTINE HYDROCHLORIDE
     Indication: HEADACHE
     Dosage: TWO TIMES A DAY
     Route: 045
  12. AZELASTINE   HCL [Concomitant]
     Active Substance: AZELASTINE HYDROCHLORIDE
     Indication: PARANASAL SINUS DISCOMFORT
     Dosage: TWO TIMES A DAY
     Route: 045
  13. PRAVASTATIN. [Concomitant]
     Active Substance: PRAVASTATIN
     Indication: BLOOD CHOLESTEROL INCREASED
  14. AZELASTINE   HCL [Concomitant]
     Active Substance: AZELASTINE HYDROCHLORIDE
     Indication: NASAL CONGESTION
     Dosage: TWO TIMES A DAY
     Route: 045
  15. GLIMEPIRIDE. [Concomitant]
     Active Substance: GLIMEPIRIDE
     Route: 048
  16. HCTZ [Concomitant]
     Active Substance: HYDROCHLOROTHIAZIDE
     Indication: BLOOD PRESSURE ABNORMAL
     Route: 048
  17. METFORMIN ER [Concomitant]
     Active Substance: METFORMIN HYDROCHLORIDE
     Indication: TYPE 2 DIABETES MELLITUS
     Route: 048
  18. SERTRALINE [Concomitant]
     Active Substance: SERTRALINE HYDROCHLORIDE
     Indication: DEPRESSION
     Route: 048
  19. CLONAZEPAM. [Concomitant]
     Active Substance: CLONAZEPAM
     Indication: RESTLESS LEGS SYNDROME
     Route: 048
  20. VITAMIN D [Concomitant]
     Active Substance: VITAMIN D NOS
     Indication: VITAMIN D DEFICIENCY
     Dosage: 2000, TWO TIMES A DAY
     Route: 048

REACTIONS (7)
  - Device failure [Unknown]
  - Wrong technique in device usage process [Unknown]
  - Decreased appetite [Recovered/Resolved]
  - Device delivery system issue [Unknown]
  - Device issue [Unknown]
  - Increased appetite [Unknown]
  - Product dose omission [Unknown]

NARRATIVE: CASE EVENT DATE: 20200225
